FAERS Safety Report 7488117-9 (Version None)
Quarter: 2011Q2

REPORT INFORMATION
  Report Type: 
  Country: None (occurrence: None)
  Receive Date: 20110518
  Receipt Date: 20110512
  Transmission Date: 20111010
  Serious: Yes (Disabling, Other)
  Sender: FDA-Public Use
  Company Number: FI-ROCHE-774136

PATIENT
  Sex: Male

DRUGS (7)
  1. IRINOTECAN HYDROCHLORIDE [Concomitant]
     Route: 042
  2. DEXAMETHASONE [Concomitant]
     Indication: NAUSEA
     Dosage: INFUSION
     Route: 042
  3. AVASTIN [Suspect]
     Route: 065
     Dates: start: 20071001, end: 20110401
  4. LEUCOVORIN CALCIUM [Concomitant]
     Dates: start: 20071001
  5. OXALIPLATIN [Concomitant]
     Dates: start: 20071001
  6. FLUOROURACIL [Concomitant]
     Dates: start: 20071001
  7. KYTRIL [Concomitant]
     Indication: NAUSEA
     Dosage: FREQUENCY: DURING INFUSION
     Route: 042

REACTIONS (4)
  - SEPSIS [None]
  - HYDRONEPHROSIS [None]
  - DIARRHOEA [None]
  - RENAL INFARCT [None]
